FAERS Safety Report 5669444-4 (Version None)
Quarter: 2008Q1

REPORT INFORMATION
  Report Type: 
  Country: None (occurrence: None)
  Receive Date: 20080317
  Receipt Date: 20080311
  Transmission Date: 20080703
  Serious: Yes (Hospitalization)
  Sender: FDA-Public Use
  Company Number: B0495509A

PATIENT
  Age: 82 Year
  Sex: Female
  Weight: 52 kg

DRUGS (13)
  1. VALTREX [Suspect]
     Indication: HERPES ZOSTER
     Dosage: 1000MG THREE TIMES PER DAY
     Route: 048
     Dates: start: 20071108, end: 20071109
  2. BLOPRESS [Concomitant]
     Indication: HYPERTENSION
     Dosage: 8MG PER DAY
     Route: 048
     Dates: start: 20061201
  3. MUNOBAL [Concomitant]
     Indication: HYPERTENSION
     Dosage: 10MG PER DAY
     Route: 048
     Dates: start: 20000905
  4. ASPIRIN [Concomitant]
     Indication: CEREBRAL INFARCTION
     Dosage: 100MG PER DAY
     Route: 048
     Dates: start: 20010320
  5. SIGMART [Concomitant]
     Indication: ANGINA PECTORIS
     Dosage: 15MG PER DAY
     Route: 048
     Dates: start: 20001212
  6. NITRODERM [Concomitant]
     Indication: ANGINA PECTORIS
     Route: 062
     Dates: start: 20000725
  7. HALCION [Concomitant]
     Indication: INSOMNIA
     Dosage: .25MG PER DAY
     Route: 048
     Dates: start: 20050727
  8. GASTER D [Concomitant]
     Dosage: 10MG PER DAY
     Route: 048
     Dates: start: 20051124
  9. GASMOTIN [Concomitant]
     Indication: GASTRITIS
     Dosage: 15MG PER DAY
     Route: 048
     Dates: start: 20010321
  10. DEPAS [Concomitant]
     Indication: ANXIETY DISORDER
     Dosage: 1MG PER DAY
     Route: 048
     Dates: start: 20060818
  11. FERROMIA [Concomitant]
     Dosage: 100MG PER DAY
     Route: 048
     Dates: start: 20000808
  12. EVISTA [Concomitant]
     Indication: OSTEOPOROSIS POSTMENOPAUSAL
     Dosage: 60MG PER DAY
     Route: 048
     Dates: start: 20061201
  13. GLYSENNID [Concomitant]
     Indication: CONSTIPATION
     Dosage: 24MG PER DAY
     Route: 048
     Dates: start: 20061201

REACTIONS (5)
  - AFFECT LABILITY [None]
  - COORDINATION ABNORMAL [None]
  - DYSARTHRIA [None]
  - GAIT DISTURBANCE [None]
  - RENAL FAILURE ACUTE [None]
